FAERS Safety Report 12446673 (Version 2)
Quarter: 2016Q2

REPORT INFORMATION
  Report Type: Spontaneous
  Country: US (occurrence: US)
  Receive Date: 20160608
  Receipt Date: 20160628
  Transmission Date: 20160815
  Serious: Yes (Other)
  Sender: FDA-Public Use
  Company Number: US-ROCHE-1770751

PATIENT
  Age: 44 Year
  Sex: Male

DRUGS (7)
  1. BEVACIZUMAB [Suspect]
     Active Substance: BEVACIZUMAB
     Indication: IMMUNOSUPPRESSION
     Route: 065
  2. PREDNISONE. [Suspect]
     Active Substance: PREDNISONE
     Indication: IMMUNOSUPPRESSION
     Route: 065
  3. MYCOPHENOLATE MOFETIL. [Suspect]
     Active Substance: MYCOPHENOLATE MOFETIL
     Indication: IMMUNOSUPPRESSION
     Route: 065
  4. INTERFERON ALFA-2A [Suspect]
     Active Substance: INTERFERON ALFA-2A
     Indication: IMMUNOSUPPRESSION
     Route: 065
  5. METHOTREXATE [Suspect]
     Active Substance: METHOTREXATE
     Indication: IMMUNOSUPPRESSION
     Route: 065
  6. ADALIMUMAB [Suspect]
     Active Substance: ADALIMUMAB
     Indication: IMMUNOSUPPRESSION
     Route: 065
  7. CICLOSPORIN [Suspect]
     Active Substance: CYCLOSPORINE
     Indication: IMMUNOSUPPRESSION
     Route: 065

REACTIONS (3)
  - Headache [Unknown]
  - Cardiac failure acute [Unknown]
  - Visual field defect [Unknown]
